FAERS Safety Report 9096624 (Version 2)
Quarter: 2013Q1

REPORT INFORMATION
  Report Type: Spontaneous
  Country: US (occurrence: None)
  Receive Date: 20130124
  Receipt Date: 20130206
  Transmission Date: 20140127
  Serious: Yes (Other)
  Sender: FDA-Public Use
  Company Number: AMAG201300014

PATIENT
  Age: 74 Year
  Sex: Female
  Weight: 60 kg

DRUGS (10)
  1. FERAHEME (FERUMOXYTOL) INJECTION, 510MG [Suspect]
     Indication: IRON DEFICIENCY ANAEMIA
     Route: 042
     Dates: start: 20121108, end: 20121108
  2. FERAHEME (FERUMOXYTOL) INJECTION, 510MG [Suspect]
     Indication: LIVER DISORDER
     Route: 042
     Dates: start: 20121108, end: 20121108
  3. FERAHEME (FERUMOXYTOL) INJECTION, 510MG [Suspect]
     Indication: HEPATIC CIRRHOSIS
     Route: 042
     Dates: start: 20121108, end: 20121108
  4. INSULIN (INSULIN) [Concomitant]
  5. URSODIOL (URSODIOL) [Concomitant]
  6. OMEPRAZOLE (OMEPRAZOLE) [Concomitant]
  7. VITRON C (ASCORBIC ACID, FERROUS FUMARATE) [Concomitant]
  8. FUROSEMIDE (FUROSEMIDE) [Concomitant]
  9. FERROUS GLUCONATE (FERROUS GLUCONATE) [Concomitant]
  10. NADOLOL (NADOLOL) [Concomitant]

REACTIONS (9)
  - Chest discomfort [None]
  - Dyspepsia [None]
  - Vomiting [None]
  - Heart rate decreased [None]
  - Heart rate irregular [None]
  - Oxygen saturation decreased [None]
  - Blood pressure systolic increased [None]
  - Blood pressure diastolic decreased [None]
  - Hypersensitivity [None]
